FAERS Safety Report 6709556-7 (Version None)
Quarter: 2010Q2

REPORT INFORMATION
  Report Type: 
  Country: None (occurrence: None)
  Receive Date: 20100504
  Receipt Date: 20100427
  Transmission Date: 20101027
  Serious: Yes (Other)
  Sender: FDA-Public Use
  Company Number: FR-ROCHE-667533

PATIENT
  Sex: Female
  Weight: 68 kg

DRUGS (2)
  1. TAMIFLU [Suspect]
     Dosage: TDD: 2 DOSES
     Route: 048
     Dates: start: 20090924, end: 20090929
  2. LEVOTHYROX [Concomitant]
     Indication: HYPOTHYROIDISM
     Dosage: DRUG RPTD: LEVOTHYROX 75, TDD: 1 DOSE
     Route: 048
     Dates: start: 19990101

REACTIONS (8)
  - ABDOMINAL PAIN [None]
  - CONJUNCTIVITIS [None]
  - DISTURBANCE IN ATTENTION [None]
  - MOVEMENT DISORDER [None]
  - PAIN [None]
  - SENSORY DISTURBANCE [None]
  - TREMOR [None]
  - URINARY TRACT DISORDER [None]
